FAERS Safety Report 21112180 (Version 1)
Quarter: 2022Q3

REPORT INFORMATION
  Report Type: Spontaneous
  Country: US (occurrence: None)
  Receive Date: 20220721
  Receipt Date: 20220721
  Transmission Date: 20221026
  Serious: Yes (Life-Threatening, Hospitalization)
  Sender: FDA-Public Use
  Company Number: None

PATIENT
  Age: 64 Year
  Sex: Male
  Weight: 88 kg

DRUGS (1)
  1. CAPECITABINE [Suspect]
     Active Substance: CAPECITABINE
     Indication: Neoplasm malignant
     Dosage: FREQUENCY : TWICE A DAY;?
     Route: 048
     Dates: start: 20220622, end: 20220708

REACTIONS (14)
  - Dyspepsia [None]
  - Oropharyngeal pain [None]
  - Skin discolouration [None]
  - Tongue discolouration [None]
  - Skin hyperpigmentation [None]
  - Cheilitis [None]
  - Cheilitis [None]
  - Dry skin [None]
  - Rash [None]
  - Diarrhoea [None]
  - Nausea [None]
  - Vomiting [None]
  - Neutropenia [None]
  - Mucosal inflammation [None]

NARRATIVE: CASE EVENT DATE: 20220711
